FAERS Safety Report 4385756-9 (Version None)
Quarter: 2004Q2

REPORT INFORMATION
  Report Type: 
  Country: None (occurrence: None)
  Receive Date: 20040623
  Receipt Date: 20040609
  Transmission Date: 20050107
  Serious: Yes (Death, Other)
  Sender: FDA-Public Use
  Company Number: JP_040603358

PATIENT
  Age: 46 Year
  Sex: Male

DRUGS (5)
  1. GEMZAR [Suspect]
     Indication: BLADDER CANCER
     Dosage: 1000 MG OTHER
     Route: 050
     Dates: start: 20030201
  2. GEMZAR [Suspect]
     Indication: METASTASES TO LIVER
     Dosage: 1000 MG OTHER
     Route: 050
     Dates: start: 20030201
  3. GEMZAR [Suspect]
     Indication: METASTASES TO LUNG
     Dosage: 1000 MG OTHER
     Route: 050
     Dates: start: 20030201
  4. CARBOPLATIN [Concomitant]
  5. DOCETAXEL [Concomitant]

REACTIONS (9)
  - ALOPECIA [None]
  - ANAEMIA [None]
  - DRUG EFFECT DECREASED [None]
  - MALIGNANT NEOPLASM PROGRESSION [None]
  - METASTASES TO LIVER [None]
  - NAUSEA [None]
  - PLATELET COUNT DECREASED [None]
  - VOMITING [None]
  - WHITE BLOOD CELL COUNT DECREASED [None]
